FAERS Safety Report 8064938 (Version 2)
Quarter: 2013Q1

REPORT INFORMATION
  Report Type: Spontaneous
  Country: US (occurrence: US)
  Receive Date: 20110802
  Receipt Date: 20130118
  Transmission Date: 20140127
  Serious: Yes (Hospitalization)
  Sender: FDA-Public Use
  Company Number: US-GLAXOSMITHKLINE-A0910483A

PATIENT
  Age: 80 Year
  Sex: Female
  Weight: 75.9 kg

DRUGS (1)
  1. AVANDIA [Suspect]
     Indication: DIABETES MELLITUS
     Dosage: 4MG PER DAY
     Route: 048
     Dates: start: 20040527, end: 200706

REACTIONS (5)
  - Transient ischaemic attack [Not Recovered/Not Resolved]
  - Cardiac valve disease [Unknown]
  - Coronary artery bypass [Unknown]
  - Back pain [Unknown]
  - Cardiac failure congestive [Unknown]
